FAERS Safety Report 19656877 (Version 1)
Quarter: 2021Q3

REPORT INFORMATION
  Report Type: Spontaneous
  Country: US (occurrence: US)
  Receive Date: 20210804
  Receipt Date: 20210804
  Transmission Date: 20211014
  Serious: Yes (Other)
  Sender: FDA-Public Use
  Company Number: NVSC2021US167050

PATIENT
  Age: 62 Year
  Sex: Female

DRUGS (1)
  1. GILENYA [Suspect]
     Active Substance: FINGOLIMOD HYDROCHLORIDE
     Indication: MULTIPLE SCLEROSIS
     Dosage: UNK
     Route: 065

REACTIONS (5)
  - Nervousness [Unknown]
  - Overweight [Unknown]
  - Dysstasia [Unknown]
  - Multiple sclerosis [Unknown]
  - Muscle spasticity [Unknown]

NARRATIVE: CASE EVENT DATE: 20210720
